FAERS Safety Report 10108941 (Version 1)
Quarter: 2014Q2

REPORT INFORMATION
  Report Type: Spontaneous
  Country: US (occurrence: US)
  Receive Date: 20140425
  Receipt Date: 20140425
  Transmission Date: 20141212
  Serious: No
  Sender: FDA-Public Use
  Company Number: US-MYLANLABS-2014S1007743

PATIENT
  Sex: Female

DRUGS (1)
  1. DRONABINOL CAPSULES USP [Suspect]
     Route: 048

REACTIONS (2)
  - Drug effect decreased [Not Recovered/Not Resolved]
  - Incorrect product storage [Recovered/Resolved]
